FAERS Safety Report 24348321 (Version 1)
Quarter: 2024Q3

REPORT INFORMATION
  Report Type: Spontaneous
  Country: FI (occurrence: FI)
  Receive Date: 20240923
  Receipt Date: 20240923
  Transmission Date: 20241016
  Serious: Yes (Hospitalization)
  Sender: CHEPLAPHARM
  Company Number: None

PATIENT
  Age: 48 Year
  Sex: Female

DRUGS (9)
  1. OLANZAPINE PAMOATE [Suspect]
     Active Substance: OLANZAPINE PAMOATE
     Indication: Schizoaffective disorder
     Dosage: 300 MG INJECTION IM EVERY 4 WEEKS
     Route: 030
     Dates: start: 20160413, end: 20240903
  2. SERTRALINE HYDROCHLORIDE [Concomitant]
     Active Substance: SERTRALINE HYDROCHLORIDE
     Indication: Schizoaffective disorder
     Dosage: 100 MG IN THE MORNING?DAILY DOSE: 100 MILLIGRAM
  3. ESTRADIOL [Concomitant]
     Active Substance: ESTRADIOL
     Indication: Hormone replacement therapy
     Dosage: ONE PRESS PER DAY, ON HEALTHY, CLEAN SKIN, THIGHS, UPPER ARMS OR STOMACH. FOR CONTINUOUS USE. PRO...
     Route: 003
  4. ROSUVASTATIN [Concomitant]
     Active Substance: ROSUVASTATIN\ROSUVASTATIN CALCIUM
     Indication: Hypercholesterolaemia
     Dosage: 5 MG PER DAY.?DAILY DOSE: 5 MILLIGRAM
  5. Azona [Concomitant]
     Indication: Sleep disorder
     Dosage: 50 MG IN THE EVENINGS REGULARLY. FROM 3.9.24 ONLY AS NECESSARY. /?50 MG IN THE EVENINGS REGULARLY...
     Route: 048
  6. Levothyroxine Orion [Concomitant]
     Indication: Hypothyroidism
     Dosage: 1.5 TABLETS IN THE MORNINGS, EXCEPT ON SUNDAYS 2 TABLETS /?1.5 TABLETS IN THE MORNINGS, EXCEPT ON...
     Route: 048
  7. LITHIUM CARBONATE [Concomitant]
     Active Substance: LITHIUM CARBONATE
     Indication: Schizoaffective disorder
     Dosage: 450 MG IN THE MORNING, 900 MG IN THE EVENING. FROM 3.9.24 300 MG IN THE MORNING, 900 MG IN THE EV...
     Route: 048
  8. RYBELSUS [Concomitant]
     Active Substance: SEMAGLUTIDE
     Indication: Off label use
     Dosage: DAILY DOSE: 14 MILLIGRAM
  9. RYBELSUS [Concomitant]
     Active Substance: SEMAGLUTIDE
     Indication: Weight control
     Dosage: DAILY DOSE: 14 MILLIGRAM

REACTIONS (7)
  - Restless arm syndrome [Recovering/Resolving]
  - Dizziness [Recovering/Resolving]
  - Vomiting [Recovering/Resolving]
  - Somnolence [Recovering/Resolving]
  - Nausea [Recovering/Resolving]
  - Fatigue [Recovering/Resolving]
  - Dysarthria [Recovering/Resolving]

NARRATIVE: CASE EVENT DATE: 20240830
